FAERS Safety Report 26149417 (Version 1)
Quarter: 2025Q4

REPORT INFORMATION
  Report Type: Report from Study
  Country: US (occurrence: US)
  Receive Date: 20251212
  Receipt Date: 20251212
  Transmission Date: 20260118
  Serious: Yes (Hospitalization)
  Sender: ROCHE
  Company Number: US-ROCHE-2832971

PATIENT
  Sex: Male

DRUGS (3)
  1. VALCYTE [Suspect]
     Active Substance: VALGANCICLOVIR HYDROCHLORIDE
     Indication: Liver transplant
     Dosage: TWO 450 MG TABLETS QD
     Route: 048
     Dates: start: 20200707, end: 20200918
  2. CELLCEPT [Suspect]
     Active Substance: MYCOPHENOLATE MOFETIL
     Indication: Liver transplant
     Dosage: TWO 250 MG CAPSULES
     Route: 048
  3. CELLCEPT [Suspect]
     Active Substance: MYCOPHENOLATE MOFETIL
     Indication: Liver transplant
     Dosage: 500 MG 2 TABLETS, EVERY 12 HRS
     Route: 048
     Dates: start: 20200703

REACTIONS (5)
  - Malaise [Unknown]
  - Off label use [Unknown]
  - Product prescribing error [Unknown]
  - Fall [Unknown]
  - Hip fracture [Unknown]
